FAERS Safety Report 5802716-9 (Version None)
Quarter: 2008Q3

REPORT INFORMATION
  Report Type: 
  Country: None (occurrence: None)
  Receive Date: 20080708
  Receipt Date: 20080702
  Transmission Date: 20090109
  Serious: Yes (Death)
  Sender: FDA-Public Use
  Company Number: JP-ABBOTT-08P-087-0458910-00

PATIENT
  Age: 76 Year
  Sex: Male
  Weight: 59 kg

DRUGS (3)
  1. LEUPROLIDE ACETATE [Suspect]
     Indication: PROSTATE CANCER STAGE IV
     Route: 058
     Dates: start: 20070117, end: 20071121
  2. BICALUTAMIDE [Concomitant]
     Indication: PROSTATE CANCER STAGE IV
     Route: 048
     Dates: start: 20070117, end: 20080122
  3. PRULIFLOXACIN [Concomitant]
     Indication: INFECTION
     Route: 048
     Dates: start: 20070119, end: 20080122

REACTIONS (2)
  - ASPHYXIA [None]
  - ASPIRATION [None]
